FAERS Safety Report 22196641 (Version 1)
Quarter: 2023Q2

REPORT INFORMATION
  Report Type: Spontaneous
  Country: US (occurrence: None)
  Receive Date: 20230410
  Receipt Date: 20230410
  Transmission Date: 20230722
  Serious: Yes (Other)
  Sender: FDA-Public Use
  Company Number: None

PATIENT
  Sex: Male

DRUGS (1)
  1. BUPRENORPHINE\NALOXONE [Suspect]
     Active Substance: BUPRENORPHINE\NALOXONE
     Indication: Drug dependence

REACTIONS (6)
  - Product solubility abnormal [None]
  - Tongue blistering [None]
  - Glossodynia [None]
  - Incorrect dose administered [None]
  - Discomfort [None]
  - Circumstance or information capable of leading to medication error [None]

NARRATIVE: CASE EVENT DATE: 20230406
